FAERS Safety Report 14198146 (Version 2)
Quarter: 2018Q1

REPORT INFORMATION
  Report Type: Report from Study
  Country: DE (occurrence: DE)
  Receive Date: 20171117
  Receipt Date: 20180111
  Transmission Date: 20180508
  Serious: Yes (Death, Hospitalization, Other)
  Sender: FDA-Public Use
  Company Number: DE-ROCHE-2025624

PATIENT
  Age: 47 Year
  Sex: Male
  Weight: 73 kg

DRUGS (4)
  1. INTERFERON ALFA-2A [Suspect]
     Active Substance: INTERFERON ALFA-2A
     Route: 058
     Dates: start: 20121025, end: 20121104
  2. BEVACIZUMAB. [Suspect]
     Active Substance: BEVACIZUMAB
     Indication: METASTATIC RENAL CELL CARCINOMA
     Dosage: LAST DOSE TAKEN ON 26/FEB/2013
     Route: 042
     Dates: start: 20120815, end: 20130417
  3. INTERFERON ALFA-2A [Suspect]
     Active Substance: INTERFERON ALFA-2A
     Route: 058
     Dates: end: 20130417
  4. INTERFERON ALFA-2A [Suspect]
     Active Substance: INTERFERON ALFA-2A
     Indication: METASTATIC RENAL CELL CARCINOMA
     Dosage: LAST DOSE TAKEN ON 27/FEB/2013
     Route: 058
     Dates: start: 20120816, end: 20130309

REACTIONS (24)
  - Arthralgia [Not Recovered/Not Resolved]
  - Haemoglobin decreased [Unknown]
  - Epistaxis [Unknown]
  - Scar pain [Unknown]
  - Arthralgia [Unknown]
  - Thrombocytopenia [Unknown]
  - Anaemia [Unknown]
  - Blood triglycerides increased [Unknown]
  - Blood cholesterol increased [Unknown]
  - Pain in extremity [Recovering/Resolving]
  - Hypertension [Unknown]
  - Haemoglobinaemia [Unknown]
  - Peripheral swelling [Unknown]
  - Pain in extremity [Recovering/Resolving]
  - Pain in extremity [Unknown]
  - Gamma-glutamyltransferase increased [Unknown]
  - Blood alkaline phosphatase increased [Unknown]
  - Fatigue [Unknown]
  - Pain in extremity [Unknown]
  - Malignant neoplasm progression [Fatal]
  - Neutropenia [Unknown]
  - Pyrexia [Unknown]
  - Back pain [Unknown]
  - Nausea [Unknown]

NARRATIVE: CASE EVENT DATE: 20120830
